FAERS Safety Report 8221975-9 (Version None)
Quarter: 2012Q1

REPORT INFORMATION
  Report Type: 
  Country: None (occurrence: None)
  Receive Date: 20120320
  Receipt Date: 20120308
  Transmission Date: 20120608
  Serious: Yes (Hospitalization)
  Sender: FDA-Public Use
  Company Number: FR-PFIZER INC-2011251741

PATIENT
  Age: 68 Year
  Sex: Female
  Weight: 45 kg

DRUGS (11)
  1. CRIZOTINIB [Suspect]
     Dosage: 150 MG, 2X/DAY
     Route: 048
     Dates: start: 20111115, end: 20111117
  2. GAVISCON [Concomitant]
     Indication: ABDOMINAL PAIN UPPER
     Dosage: UNK
     Dates: start: 20110921
  3. CITALOPRAM HYDROBROMIDE [Concomitant]
     Indication: PROPHYLAXIS
     Dosage: UNK
     Dates: start: 20110915, end: 20111012
  4. PREDNISONE TAB [Concomitant]
     Dosage: UNK
     Dates: start: 20110912
  5. OMEPRAZOLE [Concomitant]
     Indication: GASTROOESOPHAGEAL REFLUX DISEASE
     Dosage: UNK
     Dates: start: 20100901, end: 20111014
  6. CRIZOTINIB [Suspect]
     Indication: NON-SMALL CELL LUNG CANCER
     Dosage: 250 MG, 2X/DAY
     Route: 048
     Dates: start: 20110921, end: 20111012
  7. PYOSTACINE [Concomitant]
     Indication: PRODUCTIVE COUGH
     Dosage: UNK
     Dates: start: 20110912, end: 20110921
  8. PREDNISOLONE [Concomitant]
     Indication: SJOGREN'S SYNDROME
     Dosage: UNK
     Dates: start: 20100901
  9. FIXICAL [Concomitant]
     Dosage: UNK
     Dates: start: 20010901
  10. LEVOTHYROXINE SODIUM [Concomitant]
     Indication: THYROID CANCER
     Dosage: UNK
     Dates: start: 20070901
  11. INNOHEP [Concomitant]
     Indication: VENOUS THROMBOSIS
     Dosage: UNK
     Dates: start: 20101004

REACTIONS (1)
  - CYTOLYTIC HEPATITIS [None]
